FAERS Safety Report 4421736-2 (Version None)
Quarter: 2004Q3

REPORT INFORMATION
  Report Type: 
  Country: None (occurrence: None)
  Receive Date: 20040806
  Receipt Date: 20040716
  Transmission Date: 20050211
  Serious: Yes (Other)
  Sender: FDA-Public Use
  Company Number: USA040772889

PATIENT
  Age: 64 Year
  Sex: Female
  Weight: 109 kg

DRUGS (2)
  1. HUMULIN 70/30 [Suspect]
     Indication: DIABETES MELLITUS
  2. GLUCOPHAGE [Concomitant]

REACTIONS (6)
  - BLOOD URINE [None]
  - DIVERTICULITIS [None]
  - PHARMACEUTICAL PRODUCT COMPLAINT [None]
  - RENAL NEOPLASM [None]
  - URINARY INCONTINENCE [None]
  - WEIGHT DECREASED [None]
